FAERS Safety Report 7263659-X (Version None)
Quarter: 2011Q1

REPORT INFORMATION
  Report Type: 
  Country: None (occurrence: None)
  Receive Date: 20110130
  Receipt Date: 20101215
  Transmission Date: 20110831
  Serious: No
  Sender: FDA-Public Use
  Company Number: US-ABBOTT-10P-163-0692215-00

PATIENT
  Sex: Female
  Weight: 69.916 kg

DRUGS (8)
  1. XANAX [Concomitant]
     Indication: ANXIETY
  2. DIOVAN [Concomitant]
     Indication: HYPERTENSION
     Dates: start: 20101209
  3. RAMIPRIL [Concomitant]
     Indication: HYPERTENSION
     Dates: end: 20101209
  4. FOLIC ACID [Concomitant]
     Indication: VITAMIN SUPPLEMENTATION
  5. XANAX [Concomitant]
     Indication: INSOMNIA
  6. HUMIRA [Suspect]
     Indication: PSORIATIC ARTHROPATHY
     Dates: start: 20100901
  7. METHOTREXATE [Concomitant]
     Indication: PSORIATIC ARTHROPATHY
  8. PREDNISONE [Concomitant]
     Indication: PSORIATIC ARTHROPATHY

REACTIONS (2)
  - BLOOD PRESSURE INCREASED [None]
  - DEVICE MALFUNCTION [None]
